FAERS Safety Report 13691273 (Version 1)
Quarter: 2017Q2

REPORT INFORMATION
  Report Type: Spontaneous
  Country: US (occurrence: US)
  Receive Date: 20170626
  Receipt Date: 20170626
  Transmission Date: 20170830
  Serious: Yes (Other)
  Sender: FDA-Public Use
  Company Number: US-ROCHE-670879

PATIENT
  Age: 72 Year
  Sex: Male

DRUGS (4)
  1. CAPECITABINE. [Suspect]
     Active Substance: CAPECITABINE
     Indication: SKIN CANCER
     Dosage: 500?MG IN MORNING AND 1000 MG IN THE EVENING. TAKEN ON 14 DAYS WITH 7 DAYS OFF.
     Route: 048
  2. PREDNISONE. [Suspect]
     Active Substance: PREDNISONE
     Indication: PROPHYLAXIS AGAINST TRANSPLANT REJECTION
     Route: 048
  3. ACITRETIN. [Concomitant]
     Active Substance: ACITRETIN
     Indication: SKIN CANCER
     Route: 065
  4. MYCOPHENOLATE MOFETIL. [Suspect]
     Active Substance: MYCOPHENOLATE MOFETIL
     Indication: PROPHYLAXIS AGAINST TRANSPLANT REJECTION
     Route: 048

REACTIONS (5)
  - Squamous cell carcinoma [Recovering/Resolving]
  - Fatigue [Unknown]
  - Myalgia [Unknown]
  - Basal cell carcinoma [Recovering/Resolving]
  - Palmar-plantar erythrodysaesthesia syndrome [Unknown]
